FAERS Safety Report 16589257 (Version 1)
Quarter: 2019Q3

REPORT INFORMATION
  Report Type: Report from Study
  Country: US (occurrence: US)
  Receive Date: 20190718
  Receipt Date: 20190718
  Transmission Date: 20191004
  Serious: Yes (Hospitalization, Other)
  Sender: FDA-Public Use
  Company Number: US-ROCHE-2351804

PATIENT
  Age: 70 Year
  Sex: Male
  Weight: 74.91 kg

DRUGS (2)
  1. OCREVUS [Suspect]
     Active Substance: OCRELIZUMAB
     Indication: RELAPSING MULTIPLE SCLEROSIS
  2. OCREVUS [Suspect]
     Active Substance: OCRELIZUMAB
     Indication: PROGRESSIVE MULTIPLE SCLEROSIS
     Dosage: ONGOING:NO?7/FEB/2019, RECEIVED SAME SUBSEQUENT DOSE
     Route: 042
     Dates: start: 201902

REACTIONS (4)
  - Urinary tract infection [Not Recovered/Not Resolved]
  - Dysuria [Not Recovered/Not Resolved]
  - Fatigue [Not Recovered/Not Resolved]
  - Gait disturbance [Not Recovered/Not Resolved]

NARRATIVE: CASE EVENT DATE: 201902
